FAERS Safety Report 6181835 (Version 24)
Quarter: 2013Q3

REPORT INFORMATION
  Report Type: Spontaneous
  Country: US (occurrence: US)
  Receive Date: 20061208
  Receipt Date: 20130822
  Transmission Date: 20140515
  Serious: Yes (Death, Hospitalization, Other)
  Sender: FDA-Public Use
  Company Number: PHEH2006US14743

PATIENT
  Age: 58 Year
  Sex: Male
  Weight: 89.34 kg

DRUGS (31)
  1. ZOMETA [Suspect]
     Indication: BONE LESION
     Dosage: 4 MG, QMO
     Route: 042
     Dates: start: 20051214
  2. AREDIA [Suspect]
  3. DECADRON [Concomitant]
  4. ZOLOFT [Concomitant]
  5. AMBIEN [Concomitant]
  6. COMPAZINE [Concomitant]
  7. THALOMID [Concomitant]
     Indication: PLASMA CELL MYELOMA
     Dosage: 200 MG, QD
  8. HUMULIN [Concomitant]
     Indication: DIABETES MELLITUS
     Dosage: 3 U, WITH EACH MEAL
  9. LANTUS [Concomitant]
  10. LIPITOR [Concomitant]
  11. MIRAPEX [Concomitant]
  12. CARBIDOPA [Concomitant]
  13. NEXIUM [Concomitant]
  14. LORTAB [Concomitant]
  15. ZOFRAN [Concomitant]
  16. ALOXI [Concomitant]
  17. ARANESP [Concomitant]
  18. LASIX [Concomitant]
     Dosage: 20 MG, BID
  19. LEVODOPA [Concomitant]
  20. MICARDIS [Concomitant]
     Dosage: 80 MG, DAILY
  21. COUMADIN [Concomitant]
     Dosage: 5 MG, DAILY
  22. TOPROL XL [Concomitant]
     Dosage: 25 MG, DAILY
  23. ELAVIL [Concomitant]
     Dosage: 50 MG, QHS
  24. DULCOLAX [Concomitant]
  25. XALATAN [Concomitant]
  26. VELCADE [Concomitant]
  27. REVLIMID [Concomitant]
  28. PROMETHAZINE [Concomitant]
  29. AUGMENTIN [Concomitant]
  30. DOXIL [Concomitant]
  31. CYTOXAN [Concomitant]

REACTIONS (96)
  - Fatigue [Unknown]
  - Oral disorder [Unknown]
  - Tongue ulceration [Unknown]
  - Diarrhoea [Unknown]
  - Neutropenia [Unknown]
  - Stomatitis [Unknown]
  - Cough [Unknown]
  - Constipation [Unknown]
  - Dry skin [Unknown]
  - Skin exfoliation [Unknown]
  - Polyuria [Unknown]
  - Paraesthesia [Unknown]
  - Glossodynia [Unknown]
  - Arthralgia [Recovered/Resolved]
  - Local swelling [Recovered/Resolved]
  - Blood glucose decreased [Unknown]
  - Nausea [Unknown]
  - Decreased appetite [Unknown]
  - Red cell distribution width increased [Unknown]
  - Blood glucose increased [Unknown]
  - Blood calcium decreased [Unknown]
  - Blood alkaline phosphatase increased [Unknown]
  - White blood cell count decreased [Unknown]
  - Mean cell volume increased [Unknown]
  - Platelet count decreased [Unknown]
  - Deafness [Unknown]
  - Osteoporosis [Unknown]
  - Bone pain [Unknown]
  - Diabetic neuropathy [Unknown]
  - Hypotension [Unknown]
  - Gastrooesophageal reflux disease [Unknown]
  - Abdominal discomfort [Unknown]
  - Insomnia [Unknown]
  - Rhinitis [Unknown]
  - Tinnitus [Unknown]
  - Toothache [Unknown]
  - Neuropathy peripheral [Unknown]
  - Hypercalcaemia [Not Recovered/Not Resolved]
  - Bone cyst [Unknown]
  - Articular calcification [Unknown]
  - Bone deformity [Unknown]
  - Hypergammaglobulinaemia benign monoclonal [Unknown]
  - Tremor [Unknown]
  - Cataract [Unknown]
  - Vision blurred [Recovering/Resolving]
  - Ocular hypertension [Unknown]
  - Eyelid oedema [Unknown]
  - Bone cancer [Unknown]
  - Mass [Unknown]
  - Cardiac arrest [Unknown]
  - Unresponsive to stimuli [Unknown]
  - Pulmonary oedema [Unknown]
  - Haemoptysis [Unknown]
  - Renal impairment [Unknown]
  - Ventricular tachycardia [Unknown]
  - Loss of consciousness [Unknown]
  - Blood potassium increased [Unknown]
  - Glaucoma [Unknown]
  - Haematochezia [Unknown]
  - Vomiting [Unknown]
  - Myocardial infarction [Unknown]
  - Musculoskeletal pain [Unknown]
  - Renal failure acute [Unknown]
  - Tricuspid valve incompetence [Unknown]
  - Metastases to spine [Unknown]
  - Chest pain [Unknown]
  - Dehydration [Unknown]
  - Pancytopenia [Unknown]
  - Mental status changes [Unknown]
  - Coma [Unknown]
  - Death [Fatal]
  - Parkinson^s disease [Unknown]
  - Fall [Unknown]
  - Syncope [Unknown]
  - Dizziness [Unknown]
  - Gait disturbance [Unknown]
  - Osteonecrosis of jaw [Unknown]
  - General physical health deterioration [Unknown]
  - Pain [Unknown]
  - Pain in jaw [Unknown]
  - Anxiety [Unknown]
  - Decreased interest [Unknown]
  - Bone disorder [Not Recovered/Not Resolved]
  - Gingival swelling [Not Recovered/Not Resolved]
  - Gingival pain [Not Recovered/Not Resolved]
  - Impaired healing [Not Recovered/Not Resolved]
  - Osteomyelitis [Not Recovered/Not Resolved]
  - Cerebral atrophy [Unknown]
  - Intervertebral disc degeneration [Unknown]
  - Spinal osteoarthritis [Unknown]
  - Vertebral osteophyte [Unknown]
  - Sinus polyp [Unknown]
  - Foot deformity [Unknown]
  - Pain in extremity [Unknown]
  - Anaemia [Unknown]
  - Dyspnoea [Unknown]
